FAERS Safety Report 5225486-4 (Version None)
Quarter: 2007Q1

REPORT INFORMATION
  Report Type: 
  Country: None (occurrence: None)
  Receive Date: 20070131
  Receipt Date: 20070119
  Transmission Date: 20070707
  Serious: Yes (Life-Threatening, Hospitalization, Other)
  Sender: FDA-Public Use
  Company Number: JP-PFIZER INC-2006155168

PATIENT
  Sex: Male
  Weight: 72 kg

DRUGS (4)
  1. DALACIN S [Suspect]
     Indication: BACTERAEMIA
     Dosage: TEXT:4 AMPULE
     Route: 042
     Dates: start: 20061212, end: 20061217
  2. ZITHROMAC [Suspect]
     Indication: BACTERAEMIA
     Dosage: TEXT:4 TAB.
     Route: 048
     Dates: start: 20061215, end: 20061217
  3. TARGOCID [Concomitant]
     Route: 042
     Dates: start: 20061128, end: 20061207
  4. VANCOMYCIN HYDROCHLORIDE [Concomitant]
     Route: 042
     Dates: start: 20061208, end: 20061211

REACTIONS (3)
  - ANAEMIA [None]
  - PLATELET COUNT DECREASED [None]
  - WHITE BLOOD CELL COUNT DECREASED [None]
